FAERS Safety Report 8214245-6 (Version None)
Quarter: 2012Q1

REPORT INFORMATION
  Report Type: 
  Country: None (occurrence: None)
  Receive Date: 20120316
  Receipt Date: 20120305
  Transmission Date: 20120608
  Serious: Yes (Hospitalization, Other)
  Sender: FDA-Public Use
  Company Number: US-JNJFOC-20120302752

PATIENT
  Sex: Female
  Weight: 31.8 kg

DRUGS (7)
  1. MULTI-VITAMINS [Concomitant]
  2. MESALAMINE [Concomitant]
     Route: 048
  3. IMIPRAMINE [Concomitant]
  4. REMICADE [Suspect]
     Indication: CROHN'S DISEASE
     Route: 042
     Dates: start: 20091030, end: 20100527
  5. MERCAPTOPURINE [Concomitant]
  6. PROZAC [Concomitant]
  7. CALCIUM [Concomitant]

REACTIONS (2)
  - PSORIASIS [None]
  - CROHN'S DISEASE [None]
